FAERS Safety Report 8296149-6 (Version None)
Quarter: 2012Q2

REPORT INFORMATION
  Report Type: 
  Country: None (occurrence: None)
  Receive Date: 20120418
  Receipt Date: 20120412
  Transmission Date: 20120825
  Serious: Yes (Hospitalization)
  Sender: FDA-Public Use
  Company Number: FR-GLAXOSMITHKLINE-B0794987A

PATIENT
  Sex: Female

DRUGS (1)
  1. HYCAMTIN [Suspect]
     Indication: OVARIAN CANCER
     Dosage: 16MG SINGLE DOSE
     Route: 042
     Dates: start: 20120117, end: 20120117

REACTIONS (4)
  - ANAEMIA [None]
  - MEDICATION ERROR [None]
  - NEUTROPENIA [None]
  - DRUG ADMINISTRATION ERROR [None]
